FAERS Safety Report 7985397-8 (Version None)
Quarter: 2011Q4

REPORT INFORMATION
  Report Type: 
  Country: None (occurrence: None)
  Receive Date: 20111216
  Receipt Date: 20111205
  Transmission Date: 20120403
  Serious: Yes (Hospitalization)
  Sender: FDA-Public Use
  Company Number: CA-JNJFOC-20111201931

PATIENT
  Sex: Male

DRUGS (3)
  1. REMICADE [Suspect]
     Indication: FOETAL EXPOSURE DURING PREGNANCY
     Route: 064
     Dates: start: 20070427
  2. GRAVOL TAB [Concomitant]
     Route: 064
     Dates: start: 20110418, end: 20110419
  3. MORPHINE [Concomitant]
     Route: 064

REACTIONS (1)
  - WEIGHT DECREASED [None]
